FAERS Safety Report 19184397 (Version 2)
Quarter: 2021Q3

REPORT INFORMATION
  Report Type: Report from Study
  Country: IT (occurrence: IT)
  Receive Date: 20210427
  Receipt Date: 20210817
  Transmission Date: 20211014
  Serious: No
  Sender: FDA-Public Use
  Company Number: IT-GLAXOSMITHKLINE-IT2021GSK089406

PATIENT
  Age: 48 Year
  Sex: Female
  Weight: 58 kg

DRUGS (3)
  1. NIRAPARIB [Suspect]
     Active Substance: NIRAPARIB
     Indication: MALIGNANT PERITONEAL NEOPLASM
     Dosage: UNK
     Route: 048
     Dates: start: 20210423
  2. NIRAPARIB [Suspect]
     Active Substance: NIRAPARIB
     Indication: OVARIAN EPITHELIAL CANCER
     Dosage: 200 MG, QD
     Route: 048
     Dates: start: 20200316
  3. NIRAPARIB [Suspect]
     Active Substance: NIRAPARIB
     Indication: FALLOPIAN TUBE CANCER
     Dosage: 100 MG, QD
     Route: 048
     Dates: start: 20210416, end: 20210416

REACTIONS (2)
  - Blood bilirubin increased [Recovered/Resolved]
  - Gilbert^s syndrome [Recovered/Resolved]

NARRATIVE: CASE EVENT DATE: 20210416
